FAERS Safety Report 7237783 (Version 2)
Quarter: 2014Q3

REPORT INFORMATION
  Report Type: Spontaneous
  Country: US (occurrence: None)
  Receive Date: 20091217
  Receipt Date: 20140808
  Transmission Date: 20150326
  Serious: Yes (Other)
  Sender: FDA-Public Use
  Company Number: 2009S1008777

PATIENT
  Age: 70 Year
  Sex: Male

DRUGS (1)
  1. PHOSPHO-SODA [Suspect]
     Active Substance: SODIUM PHOSPHATE, DIBASIC\SODIUM PHOSPHATE, MONOBASIC
     Indication: COLONOSCOPY
     Dosage: PO
     Route: 048
     Dates: start: 2005, end: 2005

REACTIONS (30)
  - Autoimmune disorder [None]
  - Reflux nephropathy [None]
  - Renal tubular disorder [None]
  - Oedema peripheral [None]
  - Renal failure acute [None]
  - Pneumonia [None]
  - Haematuria [None]
  - Renal arteriosclerosis [None]
  - Renal vasculitis [None]
  - Fluid overload [None]
  - Dialysis [None]
  - Micturition urgency [None]
  - Benign prostatic hyperplasia [None]
  - Urinary incontinence [None]
  - Poor quality sleep [None]
  - Renal cyst [None]
  - Nephritis allergic [None]
  - Focal segmental glomerulosclerosis [None]
  - IgA nephropathy [None]
  - Diabetic nephropathy [None]
  - Kidney fibrosis [None]
  - Renal tubular atrophy [None]
  - Nephrotic syndrome [None]
  - Renal failure chronic [None]
  - Tubulointerstitial nephritis [None]
  - Decreased appetite [None]
  - Haemodialysis [None]
  - Drug ineffective [None]
  - Glomerulonephritis membranous [None]
  - Nocturia [None]

NARRATIVE: CASE EVENT DATE: 2006
